FAERS Safety Report 8914733 (Version 1)
Quarter: 2012Q4

REPORT INFORMATION
  Report Type: 
  Country: US (occurrence: US)
  Receive Date: 20121119
  Receipt Date: 20121119
  Transmission Date: 20130627
  Serious: No
  Sender: FDA-Public Use
  Company Number: US-009507513-1211USA006012

PATIENT
  Age: 85 Year
  Sex: Male

DRUGS (1)
  1. NASONEX [Suspect]
     Indication: RHINORRHOEA
     Dosage: UNK, q12h
     Route: 045
     Dates: start: 20121024, end: 20121030

REACTIONS (2)
  - Epistaxis [Recovering/Resolving]
  - Nasal discomfort [Recovering/Resolving]
